FAERS Safety Report 10619855 (Version 1)
Quarter: 2014Q4

REPORT INFORMATION
  Report Type: Spontaneous
  Country: US (occurrence: None)
  Receive Date: 20141201
  Receipt Date: 20141201
  Transmission Date: 20150529
  Serious: No
  Sender: FDA-Public Use
  Company Number: None

PATIENT
  Age: 72 Year
  Sex: Female
  Weight: 82.56 kg

DRUGS (1)
  1. LINZESS [Suspect]
     Active Substance: LINACLOTIDE
     Indication: CONSTIPATION
     Dosage: 1 CAPSULE DAILY ONCE DAILY TAKEN BY MOUTH??5 CAPSULES TAKEN TOTAL

REACTIONS (6)
  - Paraesthesia oral [None]
  - Diarrhoea [None]
  - Hypersensitivity [None]
  - Rash pruritic [None]
  - Rash macular [None]
  - Urticaria [None]

NARRATIVE: CASE EVENT DATE: 20141129
